FAERS Safety Report 8130851-1 (Version None)
Quarter: 2012Q1

REPORT INFORMATION
  Report Type: 
  Country: None (occurrence: None)
  Receive Date: 20120213
  Receipt Date: 20120206
  Transmission Date: 20120608
  Serious: No
  Sender: FDA-Public Use
  Company Number: US-PFIZER INC-2012000927

PATIENT
  Sex: Female

DRUGS (3)
  1. COSOPT [Concomitant]
     Dosage: 2%-0.5%, OU, BID
  2. XALATAN [Suspect]
     Dosage: 0.005% OU, QD
  3. ALPHAGAN P [Concomitant]
     Dosage: 0.1%, OS, BID

REACTIONS (1)
  - OROPHARYNGEAL PAIN [None]
